FAERS Safety Report 20357419 (Version 3)
Quarter: 2022Q3

REPORT INFORMATION
  Report Type: Spontaneous
  Country: US (occurrence: US)
  Receive Date: 20220120
  Receipt Date: 20220711
  Transmission Date: 20221027
  Serious: No
  Sender: FDA-Public Use
  Company Number: US-PFIZER INC-202101440633

PATIENT
  Age: 63 Year
  Sex: Female

DRUGS (2)
  1. XELJANZ [Suspect]
     Active Substance: TOFACITINIB CITRATE
     Indication: Rheumatoid arthritis
     Dosage: 5 MG, 2X/DAY(TWICE DAILY)
     Route: 048
     Dates: start: 202106
  2. XELJANZ [Suspect]
     Active Substance: TOFACITINIB CITRATE
     Dosage: 5 MG, 2X/DAY(TWICE DAILY)
     Route: 048
     Dates: start: 202206

REACTIONS (11)
  - Intentional product misuse [Unknown]
  - Product dose omission issue [Unknown]
  - Underdose [Unknown]
  - Pain [Recovered/Resolved]
  - Headache [Unknown]
  - Sinusitis [Unknown]
  - Peripheral swelling [Recovering/Resolving]
  - Joint swelling [Recovering/Resolving]
  - Heart rate increased [Recovered/Resolved]
  - Dyspnoea [Recovered/Resolved]
  - Stress [Recovered/Resolved]

NARRATIVE: CASE EVENT DATE: 20210101
